FAERS Safety Report 19653096 (Version 3)
Quarter: 2021Q3

REPORT INFORMATION
  Report Type: Spontaneous
  Country: FR (occurrence: FR)
  Receive Date: 20210803
  Receipt Date: 20210929
  Transmission Date: 20211014
  Serious: Yes (Death)
  Sender: FDA-Public Use
  Company Number: FR-PFIZER INC-202100931976

PATIENT
  Age: 68 Year
  Sex: Male

DRUGS (14)
  1. ZOPHREN [ONDANSETRON] [Concomitant]
     Active Substance: ONDANSETRON
     Indication: PROPHYLAXIS OF NAUSEA AND VOMITING
     Dosage: 8 MG, 1X/DAY
     Route: 048
     Dates: start: 20210628, end: 20210630
  2. CANCIDAS [Suspect]
     Active Substance: CASPOFUNGIN ACETATE
     Indication: ANTIFUNGAL PROPHYLAXIS
     Dosage: 70 MG, ONCE A DAY
     Route: 042
     Dates: start: 20210611, end: 20210703
  3. CLOFARABINE MYLAN [Suspect]
     Active Substance: CLOFARABINE
     Indication: BONE MARROW CONDITIONING REGIMEN
     Dosage: 40 MG/M2
     Route: 042
     Dates: start: 20210628, end: 20210630
  4. UROMITEXAN [Concomitant]
     Active Substance: MESNA
     Indication: DRUG TOXICITY PROPHYLAXIS
     Dosage: 275 MG, 1 CYCLICAL
     Route: 042
     Dates: start: 20210628, end: 20210630
  5. URSODEOXYCHOLIC ACID [Concomitant]
     Active Substance: URSODIOL
     Indication: CHOLANGITIS
     Dosage: 250 MG, 1X/DAY
     Route: 048
     Dates: start: 20210612, end: 20210701
  6. ENDOXAN [CYCLOPHOSPHAMIDE] [Suspect]
     Active Substance: CYCLOPHOSPHAMIDE
     Indication: BONE MARROW CONDITIONING REGIMEN
     Dosage: 460 MG, ONCE A DAY
     Route: 042
     Dates: start: 20210628, end: 20210630
  7. EXJADE [Concomitant]
     Active Substance: DEFERASIROX
     Dosage: 180 MG, 2X/DAY
     Dates: start: 202102
  8. ZYVOXID [Suspect]
     Active Substance: LINEZOLID
     Indication: INFECTION PROPHYLAXIS
     Dosage: 600 MG, TWICE A DAY
     Dates: start: 20210609, end: 20210629
  9. TRAMADOL HYDROCHLORIDE. [Concomitant]
     Active Substance: TRAMADOL HYDROCHLORIDE
     Indication: PAIN
     Dosage: 1 DF, 1X/DAY
     Route: 048
     Dates: start: 20210612, end: 20210701
  10. GABAPENTIN. [Concomitant]
     Active Substance: GABAPENTIN
     Indication: PAIN
     Dosage: 100 MG, 3X/DAY
     Route: 048
     Dates: start: 20210612, end: 20210701
  11. CELLCEPT [Suspect]
     Active Substance: MYCOPHENOLATE MOFETIL\MYCOPHENOLATE MOFETIL HYDROCHLORIDE
     Indication: PROPHYLAXIS AGAINST TRANSPLANT REJECTION
     Dosage: 2 G, ONCE A DAY
     Route: 048
     Dates: start: 20210522, end: 20210702
  12. SANDIMMUN [Suspect]
     Active Substance: CYCLOSPORINE
     Indication: PROPHYLAXIS AGAINST TRANSPLANT REJECTION
     Dosage: 200 MG, ONCE A DAY
     Route: 042
     Dates: start: 20210522, end: 20210702
  13. IMIPENEM/CILASTATIN VILLERTON [Suspect]
     Active Substance: CILASTATIN SODIUM\IMIPENEM
     Indication: INFECTION PROPHYLAXIS
     Dosage: 3 G, ONCE A DAY
     Route: 042
     Dates: start: 20210609, end: 20210703
  14. ETOPOSIDE MYLAN [Suspect]
     Active Substance: ETOPOSIDE
     Indication: BONE MARROW CONDITIONING REGIMEN
     Dosage: 183 MG, ONCE A DAY
     Route: 042
     Dates: start: 20210628, end: 20210630

REACTIONS (2)
  - Acute kidney injury [Fatal]
  - Off label use [Unknown]

NARRATIVE: CASE EVENT DATE: 20210609
